FAERS Safety Report 5792654-2 (Version None)
Quarter: 2008Q2

REPORT INFORMATION
  Report Type: 
  Country: None (occurrence: None)
  Receive Date: 20080624
  Receipt Date: 20080609
  Transmission Date: 20081010
  Serious: Yes (Other)
  Sender: FDA-Public Use
  Company Number: 19566

PATIENT
  Sex: Female

DRUGS (2)
  1. METHOTREXATE [Suspect]
     Dates: start: 19930101
  2. ENBREL [Suspect]
     Dates: start: 20070101

REACTIONS (3)
  - ANAPHYLACTIC REACTION [None]
  - NO REACTION ON PREVIOUS EXPOSURE TO DRUG [None]
  - PHARMACEUTICAL PRODUCT COMPLAINT [None]
